FAERS Safety Report 15662353 (Version 2)
Quarter: 2018Q4

REPORT INFORMATION
  Report Type: Report from Study
  Country: US (occurrence: US)
  Receive Date: 20181127
  Receipt Date: 20181205
  Transmission Date: 20190205
  Serious: Yes (Hospitalization)
  Sender: FDA-Public Use
  Company Number: US-BAUSCH-BL-2018-032578

PATIENT
  Age: 57 Year
  Sex: Male

DRUGS (2)
  1. ATIVAN [Suspect]
     Active Substance: LORAZEPAM
     Indication: PANIC DISORDER
     Dosage: 2 TABLETS BY MOUTH THREE TIMES DAILY AND ONE TABLET AT BEDTIME
     Route: 048
     Dates: start: 1986
  2. LORAZEPAM. [Suspect]
     Active Substance: LORAZEPAM
     Indication: PANIC DISORDER
     Route: 065

REACTIONS (7)
  - Deafness [Unknown]
  - Product substitution issue [Not Recovered/Not Resolved]
  - Foreign body in ear [Unknown]
  - Vertigo [Unknown]
  - Drug ineffective [Unknown]
  - Dizziness [Unknown]
  - Product supply issue [Not Recovered/Not Resolved]

NARRATIVE: CASE EVENT DATE: 20181118
